FAERS Safety Report 17434892 (Version 2)
Quarter: 2020Q1

REPORT INFORMATION
  Report Type: Spontaneous
  Country: KZ (occurrence: KZ)
  Receive Date: 20200219
  Receipt Date: 20200224
  Transmission Date: 20200409
  Serious: Yes (Hospitalization, Other)
  Sender: FDA-Public Use
  Company Number: KZ-PFIZER INC-2020049273

PATIENT
  Age: 48 Year
  Sex: Male

DRUGS (3)
  1. ZALAIN [Concomitant]
     Active Substance: SERTACONAZOLE NITRATE
  2. DIFLUCAN [Suspect]
     Active Substance: FLUCONAZOLE
     Indication: FUNGAL SKIN INFECTION
     Dosage: 200 MG 100 ML, COURSE # 5
     Route: 042
     Dates: start: 20181102
  3. BORIC ACID [Concomitant]
     Active Substance: BORIC ACID
     Dosage: UNK

REACTIONS (20)
  - Pneumonia viral [Unknown]
  - Nasal congestion [Unknown]
  - Product use in unapproved indication [Unknown]
  - Asthenia [Unknown]
  - Dizziness [Unknown]
  - Cholelithiasis [Unknown]
  - Overdose [Unknown]
  - Poisoning [Unknown]
  - Abdominal pain upper [Unknown]
  - Alanine aminotransferase increased [Unknown]
  - Off label use [Unknown]
  - Cholestasis [Unknown]
  - Rash [Unknown]
  - Pyrexia [Unknown]
  - Hepatotoxicity [Unknown]
  - Hepatic pain [Unknown]
  - Pruritus [Unknown]
  - Dyspnoea [Unknown]
  - Aspartate aminotransferase increased [Unknown]
  - Asthma [Unknown]

NARRATIVE: CASE EVENT DATE: 20181106
